FAERS Safety Report 16275583 (Version 1)
Quarter: 2019Q2

REPORT INFORMATION
  Report Type: Report from Study
  Country: IL (occurrence: IL)
  Receive Date: 20190506
  Receipt Date: 20190506
  Transmission Date: 20190711
  Serious: Yes (Hospitalization, Other)
  Sender: FDA-Public Use
  Company Number: IL-SA-2018SA106064

PATIENT
  Age: 65 Year
  Sex: Female

DRUGS (12)
  1. LOTAN [LOSARTAN POTASSIUM] [Concomitant]
     Dosage: 100 MG
  2. INSULIN GLARGINE [Suspect]
     Active Substance: INSULIN GLARGINE
     Indication: TYPE 2 DIABETES MELLITUS
     Dosage: 20 U, QD
     Route: 058
  3. NOVORAPID [Suspect]
     Active Substance: INSULIN ASPART
     Dosage: 8 DF,BID
     Route: 065
  4. CADEX [DOXAZOSIN MESILATE] [Concomitant]
     Dosage: 0.5 MG
  5. INSULIN GLARGINE [Suspect]
     Active Substance: INSULIN GLARGINE
     Dosage: 16 DF, QD
     Route: 058
     Dates: start: 20180408
  6. INSULIN GLARGINE [Suspect]
     Active Substance: INSULIN GLARGINE
     Dosage: 30 IU, QD
     Route: 058
  7. XARELTO [Concomitant]
     Active Substance: RIVAROXABAN
     Dosage: 20 MG
  8. OMEPRADEX [Concomitant]
     Active Substance: OMEPRAZOLE
     Dosage: 20 MG
  9. VERAPABENE [Concomitant]
     Dosage: 40 MG
  10. TORID [Concomitant]
     Active Substance: ATORVASTATIN CALCIUM
     Dosage: 40 MG
  11. INSULIN GLARGINE [Suspect]
     Active Substance: INSULIN GLARGINE
     Dosage: 28 DF, QD
     Route: 058
  12. INSULIN GLULISINE [Suspect]
     Active Substance: INSULIN GLULISINE
     Indication: TYPE 2 DIABETES MELLITUS
     Dosage: 6-10 UNITS, TID
     Route: 058

REACTIONS (12)
  - Dyspnoea [Recovered/Resolved]
  - Inflammation [Recovered/Resolved]
  - Dizziness [Unknown]
  - Confusional state [Recovered/Resolved]
  - Blood glucose decreased [Recovered/Resolved]
  - Blood glucose increased [Not Recovered/Not Resolved]
  - Pleural effusion [Recovered/Resolved]
  - Asthenia [Unknown]
  - Fall [Unknown]
  - Hand fracture [Unknown]
  - Inflammation [Unknown]
  - Pericardial effusion [Recovered/Resolved]

NARRATIVE: CASE EVENT DATE: 201803
